FAERS Safety Report 7155921 (Version 11)
Quarter: 2016Q4

REPORT INFORMATION
  Report Type: Spontaneous
  Country: CA (occurrence: CA)
  Receive Date: 20091022
  Receipt Date: 20161014
  Transmission Date: 20170207
  Serious: Yes (Other)
  Sender: FDA-Public Use
  Company Number: CA-ROCHE-663583

PATIENT
  Age: 52 Year
  Sex: Male

DRUGS (48)
  1. ZIDOVUDINE. [Suspect]
     Active Substance: ZIDOVUDINE
     Indication: HIV INFECTION
     Route: 065
  2. RESCRIPTOR [Suspect]
     Active Substance: DELAVIRDINE MESYLATE
     Indication: HIV INFECTION
     Route: 048
  3. CRIXIVAN [Suspect]
     Active Substance: INDINAVIR SULFATE
     Indication: HIV INFECTION
     Route: 048
  4. EFAVIRENZ [Suspect]
     Active Substance: EFAVIRENZ
     Route: 065
  5. DARUNAVIR [Suspect]
     Active Substance: DARUNAVIR
     Indication: ANTIRETROVIRAL THERAPY
     Route: 065
  6. ETRAVIRINE [Suspect]
     Active Substance: ETRAVIRINE
     Indication: ANTIRETROVIRAL THERAPY
     Route: 048
  7. FUZEON [Suspect]
     Active Substance: ENFUVIRTIDE
     Indication: HIV INFECTION
     Dosage: SINGLE USE VIAL, DOSAGE FORM WAS POWDER FOR SOLUTION SUBCUTANEOUS
     Route: 058
  8. DELAVIRDINE MESILATE [Suspect]
     Active Substance: DELAVIRDINE MESYLATE
     Indication: HIV INFECTION
     Route: 065
  9. ETRAVIRINE [Suspect]
     Active Substance: ETRAVIRINE
     Indication: HIV INFECTION
     Route: 065
  10. SAQUINAVIR [Suspect]
     Active Substance: SAQUINAVIR
     Indication: HIV INFECTION
     Route: 048
  11. ZERIT [Suspect]
     Active Substance: STAVUDINE
     Indication: HIV INFECTION
     Route: 065
  12. SUSTIVA [Suspect]
     Active Substance: EFAVIRENZ
     Indication: HIV INFECTION
     Route: 048
  13. KALETRA [Suspect]
     Active Substance: LOPINAVIR\RITONAVIR
     Indication: HIV INFECTION
     Route: 065
  14. STAVUDINE. [Suspect]
     Active Substance: STAVUDINE
     Indication: HIV INFECTION
     Route: 048
  15. STAVUDINE. [Suspect]
     Active Substance: STAVUDINE
     Route: 065
  16. INDINAVIR [Suspect]
     Active Substance: INDINAVIR
     Indication: HIV INFECTION
     Route: 065
  17. DARUNAVIR [Suspect]
     Active Substance: DARUNAVIR
     Indication: HIV INFECTION
     Route: 065
  18. RALTEGRAVIR. [Suspect]
     Active Substance: RALTEGRAVIR
     Indication: HIV INFECTION
     Route: 065
  19. NEVIRAPINE. [Suspect]
     Active Substance: NEVIRAPINE
     Indication: HIV INFECTION
     Route: 065
  20. NEVIRAPINE. [Suspect]
     Active Substance: NEVIRAPINE
     Route: 065
  21. RITONAVIR. [Suspect]
     Active Substance: RITONAVIR
     Indication: HIV INFECTION
     Route: 065
  22. LOPINAVIR [Suspect]
     Active Substance: LOPINAVIR
     Indication: HIV INFECTION
     Route: 065
  23. ISENTRESS [Suspect]
     Active Substance: RALTEGRAVIR POTASSIUM
     Indication: HIV INFECTION
     Route: 048
  24. DIDANOSINE. [Suspect]
     Active Substance: DIDANOSINE
     Indication: HIV INFECTION
     Route: 065
  25. STAVUDINE. [Suspect]
     Active Substance: STAVUDINE
     Route: 065
  26. INDINAVIR [Suspect]
     Active Substance: INDINAVIR
     Route: 048
  27. TENOFOVIR [Suspect]
     Active Substance: TENOFOVIR
     Route: 065
  28. ABACAVIR SULFATE. [Suspect]
     Active Substance: ABACAVIR SULFATE
     Indication: ANTIRETROVIRAL THERAPY
     Route: 065
  29. VIREAD [Suspect]
     Active Substance: TENOFOVIR DISOPROXIL FUMARATE
     Indication: HIV INFECTION
     Route: 048
  30. RITONAVIR. [Suspect]
     Active Substance: RITONAVIR
     Route: 065
  31. TENOFOVIR [Suspect]
     Active Substance: TENOFOVIR
     Indication: HIV INFECTION
     Route: 065
  32. NORVIR [Suspect]
     Active Substance: RITONAVIR
     Indication: HIV INFECTION
     Route: 065
  33. RALTEGRAVIR. [Suspect]
     Active Substance: RALTEGRAVIR
     Indication: ANTIRETROVIRAL THERAPY
     Route: 048
  34. PREZISTA [Suspect]
     Active Substance: DARUNAVIR ETHANOLATE
     Indication: HIV INFECTION
     Route: 048
  35. LAMIVUDINE. [Suspect]
     Active Substance: LAMIVUDINE
     Indication: HIV INFECTION
     Route: 065
  36. INTELENCE [Suspect]
     Active Substance: ETRAVIRINE
     Indication: HIV INFECTION
     Route: 048
  37. VIDEX EC [Suspect]
     Active Substance: DIDANOSINE
     Indication: HIV INFECTION
     Dosage: GASTRO-RESISTANT CAPSULE THERAPY DURATION: 3233 DAYS, ENTERIC COATED
     Route: 048
  38. ZIAGEN [Suspect]
     Active Substance: ABACAVIR SULFATE
     Indication: HIV INFECTION
     Route: 065
  39. ZIAGEN [Suspect]
     Active Substance: ABACAVIR SULFATE
     Route: 048
  40. LAMIVUDINE. [Suspect]
     Active Substance: LAMIVUDINE
     Indication: ANTIRETROVIRAL THERAPY
     Route: 065
  41. DELAVIRDINE MESILATE [Suspect]
     Active Substance: DELAVIRDINE MESYLATE
     Route: 065
  42. VIRAMUNE [Suspect]
     Active Substance: NEVIRAPINE
     Indication: HIV INFECTION
     Route: 065
  43. NELFINAVIR [Suspect]
     Active Substance: NELFINAVIR
     Indication: HIV INFECTION
     Dosage: FILM-COATED TABLET
     Route: 048
  44. LAMIVUDINE. [Suspect]
     Active Substance: LAMIVUDINE
     Route: 065
  45. EFAVIRENZ [Suspect]
     Active Substance: EFAVIRENZ
     Indication: HIV INFECTION
     Route: 065
  46. NORVIR [Suspect]
     Active Substance: RITONAVIR
     Indication: ANTIRETROVIRAL THERAPY
  47. ABACAVIR SULFATE. [Suspect]
     Active Substance: ABACAVIR SULFATE
     Indication: HIV INFECTION
     Route: 065
  48. ABACAVIR SULFATE. [Suspect]
     Active Substance: ABACAVIR SULFATE
     Route: 048

REACTIONS (5)
  - Ophthalmoplegia [Recovering/Resolving]
  - Diplopia [Recovering/Resolving]
  - Mitochondrial toxicity [Recovering/Resolving]
  - Lipodystrophy acquired [Recovering/Resolving]
  - Eyelid ptosis [Recovering/Resolving]
